FAERS Safety Report 8111828-9 (Version None)
Quarter: 2012Q1

REPORT INFORMATION
  Report Type: 
  Country: None (occurrence: None)
  Receive Date: 20120202
  Receipt Date: 20120202
  Transmission Date: 20120608
  Serious: Yes (Other)
  Sender: FDA-Public Use
  Company Number: None

PATIENT
  Sex: Female
  Weight: 46.7205 kg

DRUGS (2)
  1. ALENDRONATE SODIUM [Suspect]
     Indication: OSTEOPOROSIS
     Dosage: 70MG ONE WEEKLY TABLET
     Dates: start: 20110213, end: 20110530
  2. EVISTA [Concomitant]

REACTIONS (2)
  - LOOSE TOOTH [None]
  - DEVICE FAILURE [None]
